FAERS Safety Report 24363024 (Version 1)
Quarter: 2024Q3

REPORT INFORMATION
  Report Type: Spontaneous
  Country: US (occurrence: US)
  Receive Date: 20240925
  Receipt Date: 20240925
  Transmission Date: 20241017
  Serious: Yes (Other)
  Sender: ALKERMES
  Company Number: US-ALKERMES INC.-ALK-2024-002407

PATIENT
  Sex: Male
  Weight: 97.959 kg

DRUGS (1)
  1. VIVITROL [Suspect]
     Active Substance: NALTREXONE
     Indication: Illness
     Dosage: 380 MILLIGRAM, QMO
     Route: 030

REACTIONS (2)
  - Spinal fracture [Unknown]
  - Fall [Unknown]
